FAERS Safety Report 12863097 (Version 2)
Quarter: 2016Q4

REPORT INFORMATION
  Report Type: Spontaneous
  Country: BR (occurrence: BR)
  Receive Date: 20161019
  Receipt Date: 20161109
  Transmission Date: 20170207
  Serious: Yes (Other)
  Sender: FDA-Public Use
  Company Number: BR-ELI_LILLY_AND_COMPANY-BR201610004633

PATIENT
  Sex: Female
  Weight: 72 kg

DRUGS (2)
  1. HUMULIN N [Suspect]
     Active Substance: INSULIN HUMAN
     Indication: PRODUCT USED FOR UNKNOWN INDICATION
     Dosage: 34 IU, EACH MORNING
     Route: 058
     Dates: start: 1999
  2. HUMULIN N [Suspect]
     Active Substance: INSULIN HUMAN
     Dosage: 24 IU, EACH EVENING
     Route: 058
     Dates: start: 1999

REACTIONS (6)
  - Visual impairment [Not Recovered/Not Resolved]
  - Injection site pain [Unknown]
  - Visual acuity reduced [Unknown]
  - Aneurysm [Unknown]
  - Blood glucose increased [Unknown]
  - Hypoacusis [Unknown]
